FAERS Safety Report 8234776-2 (Version None)
Quarter: 2012Q1

REPORT INFORMATION
  Report Type: 
  Country: None (occurrence: None)
  Receive Date: 20120321
  Receipt Date: 20120314
  Transmission Date: 20120608
  Serious: No
  Sender: FDA-Public Use
  Company Number: 2012SP005713

PATIENT
  Age: 32 Year
  Sex: Female

DRUGS (5)
  1. SYCREST (ASENAPINE (05706901/ ) [Suspect]
     Indication: BIPOLAR DISORDER
     Dosage: 10 MG;BID;SL
     Route: 060
     Dates: start: 20120127, end: 20120131
  2. OLANZAPINE [Concomitant]
  3. BENZODIAZEPINE [Concomitant]
  4. VALPROATE SODIUM [Concomitant]
  5. QUETIAPINE [Concomitant]

REACTIONS (6)
  - UNEVALUABLE EVENT [None]
  - HYPOAESTHESIA ORAL [None]
  - LARYNX IRRITATION [None]
  - DRUG EFFECT DECREASED [None]
  - HYPOTENSION [None]
  - THOUGHT BLOCKING [None]
